FAERS Safety Report 7380055-5 (Version None)
Quarter: 2011Q1

REPORT INFORMATION
  Report Type: 
  Country: None (occurrence: None)
  Receive Date: 20110324
  Receipt Date: 20110324
  Transmission Date: 20110831
  Serious: Yes (Other)
  Sender: FDA-Public Use
  Company Number: None

PATIENT
  Age: 35 Year
  Sex: Female
  Weight: 118.3888 kg

DRUGS (2)
  1. MIRENA [Suspect]
     Indication: UTERINE HAEMORRHAGE
     Dates: start: 20101214, end: 20110317
  2. MIRENA [Suspect]
     Indication: UTERINE HAEMORRHAGE
     Dates: start: 20051209, end: 20101214

REACTIONS (12)
  - SCAR [None]
  - MIGRAINE [None]
  - SECRETION DISCHARGE [None]
  - DECREASED APPETITE [None]
  - WEIGHT INCREASED [None]
  - ALOPECIA [None]
  - LYMPHADENOPATHY [None]
  - DEPRESSION [None]
  - EMOTIONAL DISORDER [None]
  - WEIGHT DECREASED [None]
  - ACNE [None]
  - INSOMNIA [None]
